FAERS Safety Report 12719902 (Version 1)
Quarter: 2016Q3

REPORT INFORMATION
  Report Type: Spontaneous
  Country: US (occurrence: US)
  Receive Date: 20160907
  Receipt Date: 20160907
  Transmission Date: 20161109
  Serious: No
  Sender: FDA-Public Use
  Company Number: US-TEVA-679998USA

PATIENT
  Sex: Female

DRUGS (1)
  1. COPAXONE [Suspect]
     Active Substance: GLATIRAMER ACETATE
     Indication: MULTIPLE SCLEROSIS
     Route: 058
     Dates: start: 201602, end: 201607

REACTIONS (4)
  - Muscle rigidity [Unknown]
  - Hypokinesia [Unknown]
  - Lethargy [Unknown]
  - Headache [Unknown]

NARRATIVE: CASE EVENT DATE: 2016
